FAERS Safety Report 15280438 (Version 1)
Quarter: 2018Q4

REPORT INFORMATION
  Report Type: Spontaneous
  Country: NL (occurrence: NL)
  Receive Date: 20180815
  Receipt Date: 20180815
  Transmission Date: 20190204
  Serious: Yes (Other)
  Sender: FDA-Public Use
  Company Number: NL-TEVA-2018-NL-941981

PATIENT
  Age: 37 Year
  Sex: Female

DRUGS (1)
  1. LEVOCETIRIZINE FILMOMHULDE TABLET, 5 MG (MILLIGRAM) [Suspect]
     Active Substance: LEVOCETIRIZINE
     Indication: SEASONAL ALLERGY
     Dosage: IN TOTAAL 2 TABLETTEN IN 1 WEEK
     Dates: start: 20180606, end: 20180613

REACTIONS (3)
  - Abortion spontaneous [Unknown]
  - Uterine haemorrhage [Unknown]
  - Abdominal pain [Unknown]

NARRATIVE: CASE EVENT DATE: 20180613
